FAERS Safety Report 19752431 (Version 3)
Quarter: 2022Q2

REPORT INFORMATION
  Report Type: Spontaneous
  Country: SO (occurrence: NL)
  Receive Date: 20210827
  Receipt Date: 20220609
  Transmission Date: 20220721
  Serious: Yes (Hospitalization, Other)
  Sender: FDA-Public Use
  Company Number: SO-SUN PHARMACEUTICAL INDUSTRIES LTD-2021R1-309215

PATIENT
  Age: 73 Year
  Sex: Male

DRUGS (1)
  1. MORPHINE [Suspect]
     Active Substance: MORPHINE
     Indication: Procedural pain
     Dosage: UNK
     Route: 042

REACTIONS (4)
  - Overdose [Unknown]
  - Unresponsive to stimuli [Unknown]
  - Oxygen saturation decreased [Unknown]
  - Respiratory distress [Unknown]
